FAERS Safety Report 9221099 (Version 1)
Quarter: 2013Q2

REPORT INFORMATION
  Report Type: Spontaneous
  Country: US (occurrence: US)
  Receive Date: 20130409
  Receipt Date: 20130409
  Transmission Date: 20140414
  Serious: Yes (Other)
  Sender: FDA-Public Use
  Company Number: CHPA2013US005763

PATIENT
  Sex: Female

DRUGS (3)
  1. EXCEDRIN PM [Suspect]
     Indication: ARTHRITIS
     Dosage: 2 CAPLETS, PRN
     Route: 048
  2. EXCEDRIN PM [Suspect]
     Indication: EYE PAIN
  3. NAPROXEN [Concomitant]

REACTIONS (2)
  - Visual acuity reduced [Not Recovered/Not Resolved]
  - Off label use [Unknown]
